FAERS Safety Report 15606164 (Version 1)
Quarter: 2018Q4

REPORT INFORMATION
  Report Type: Spontaneous
  Country: SE (occurrence: SE)
  Receive Date: 20181112
  Receipt Date: 20181112
  Transmission Date: 20190205
  Serious: Yes (Hospitalization)
  Sender: FDA-Public Use
  Company Number: SE-ACCORD-092586

PATIENT
  Age: 72 Year
  Sex: Female

DRUGS (14)
  1. METHOTREXATE. [Suspect]
     Active Substance: METHOTREXATE
     Indication: PSORIATIC ARTHROPATHY
     Dosage: TABLETTER
     Dates: end: 20180516
  2. SAROTEN [Concomitant]
     Active Substance: AMITRIPTYLINE
  3. DESONIX [Concomitant]
  4. CANODERM [Concomitant]
  5. LATANOPROST. [Concomitant]
     Active Substance: LATANOPROST
  6. SELOKENZOC [Concomitant]
     Active Substance: METOPROLOL SUCCINATE
  7. AZOPT [Concomitant]
     Active Substance: BRINZOLAMIDE
  8. FOLIC ACID. [Concomitant]
     Active Substance: FOLIC ACID
  9. ELIQUIS [Concomitant]
     Active Substance: APIXABAN
  10. COSENTYX [Suspect]
     Active Substance: SECUKINUMAB
     Indication: PSORIATIC ARTHROPATHY
     Dates: start: 20171130, end: 20180516
  11. SIMVASTATIN. [Concomitant]
     Active Substance: SIMVASTATIN
  12. LOSARTAN. [Concomitant]
     Active Substance: LOSARTAN
  13. MOVICOL [Concomitant]
     Active Substance: POLYETHYLENE GLYCOL 3350\POTASSIUM CHLORIDE\SODIUM BICARBONATE\SODIUM CHLORIDE
  14. ALVEDON [Concomitant]
     Active Substance: ACETAMINOPHEN

REACTIONS (1)
  - Eosinophilic pneumonia [Recovered/Resolved with Sequelae]

NARRATIVE: CASE EVENT DATE: 20180501
